FAERS Safety Report 18023123 (Version 7)
Quarter: 2022Q1

REPORT INFORMATION
  Report Type: Spontaneous
  Country: IT (occurrence: IT)
  Receive Date: 20200714
  Receipt Date: 20220307
  Transmission Date: 20220423
  Serious: Yes (Hospitalization, Other)
  Sender: FDA-Public Use
  Company Number: IT-KOREA IPSEN PHARMA-2020-11219

PATIENT
  Age: 28 Year
  Sex: Female

DRUGS (9)
  1. LETROZOLE [Suspect]
     Active Substance: LETROZOLE
     Indication: Controlled ovarian stimulation
     Dosage: 5 MILLIGRAM
     Route: 065
  2. TRIPTORELIN [Suspect]
     Active Substance: TRIPTORELIN
     Indication: Controlled ovarian stimulation
     Dosage: 0.2 MILLIGRAM
     Route: 065
  3. TRIPTORELIN [Suspect]
     Active Substance: TRIPTORELIN
     Indication: Prophylactic chemotherapy
     Dosage: 375 MILLIGRAM PER MILLILITER
     Route: 065
  4. TRIPTORELIN [Suspect]
     Active Substance: TRIPTORELIN
     Indication: Off label use
     Dosage: UNK
  5. FOLLITROPIN ALFA [Suspect]
     Active Substance: FOLLITROPIN ALFA
     Indication: Controlled ovarian stimulation
     Dosage: 150 INTERNATIONAL UNIT, QD
  6. ORGALUTRAN [Suspect]
     Active Substance: GANIRELIX ACETATE
     Indication: Controlled ovarian stimulation
     Dosage: 1 DOSAGE FORM, QD
  7. ORGALUTRAN [Suspect]
     Active Substance: GANIRELIX ACETATE
     Dosage: UNK UNK, QD, STARTED RECEIVING INJECTION OF GANIRELIX [ORGALUTRAN] DAILY
  8. ENOXAPARIN SODIUM [Suspect]
     Active Substance: ENOXAPARIN SODIUM
     Indication: Haemorrhage prophylaxis
     Dosage: 4000 INTERNATIONAL UNIT, QD
  9. ENOXAPARIN SODIUM [Suspect]
     Active Substance: ENOXAPARIN SODIUM
     Indication: Thrombosis prophylaxis

REACTIONS (9)
  - Ovarian hyperstimulation syndrome [Recovered/Resolved]
  - Ascites [Unknown]
  - Off label use [Unknown]
  - Treatment delayed [Unknown]
  - Dysuria [Unknown]
  - Abdominal distension [Unknown]
  - Abdominal pain [Unknown]
  - Nausea [Unknown]
  - Vomiting [Unknown]
